FAERS Safety Report 12930004 (Version 1)
Quarter: 2016Q4

REPORT INFORMATION
  Report Type: Spontaneous
  Country: US (occurrence: US)
  Receive Date: 20161110
  Receipt Date: 20161110
  Transmission Date: 20170207
  Serious: Yes (Other)
  Sender: FDA-Public Use
  Company Number: US-BAYER-2016-213665

PATIENT
  Age: 37 Year
  Sex: Female

DRUGS (1)
  1. MIRENA [Suspect]
     Active Substance: LEVONORGESTREL
     Dosage: 20 MCG/24HR, CONT
     Route: 015
     Dates: start: 20140117, end: 20160923

REACTIONS (7)
  - Abdominal pain [None]
  - Skin infection [None]
  - Anxiety [None]
  - Abdominal pain [None]
  - Abdominal distension [None]
  - Pelvic inflammatory disease [None]
  - Vaginal discharge [None]

NARRATIVE: CASE EVENT DATE: 20160830
